FAERS Safety Report 6490476-0 (Version None)
Quarter: 2009Q4

REPORT INFORMATION
  Report Type: 
  Country: None (occurrence: None)
  Receive Date: 20091208
  Receipt Date: 20091128
  Transmission Date: 20100525
  Serious: Yes (Hospitalization)
  Sender: FDA-Public Use
  Company Number: 1-20852612

PATIENT
  Age: 50 Year
  Sex: Female

DRUGS (12)
  1. METFORMIN HCL [Suspect]
     Dosage: ORAL
     Route: 048
  2. CELECOXIB [Suspect]
     Indication: ARTHRALGIA
     Dosage: ORAL
     Route: 048
  3. HYDROCHLOROTHIAZIDE [Suspect]
     Dosage: ORAL
     Route: 048
  4. CANDESARTAN CILEXETIL [Suspect]
     Dosage: ORAL
     Route: 048
  5. LEVOTHYROXINE SODIUM [Concomitant]
  6. ACETAMINOPHEN AND CODEINE PHOSPHATE [Concomitant]
  7. ASPIRIN [Concomitant]
  8. SIMVASTATIN [Concomitant]
  9. OMEPRAZOLE [Concomitant]
  10. PREGABALIN [Concomitant]
  11. TIZANIDINE HCL [Concomitant]
  12. ARIPIPRAZOLE [Concomitant]

REACTIONS (19)
  - ASTHENIA [None]
  - BLOOD GLUCOSE DECREASED [None]
  - BLOOD POTASSIUM INCREASED [None]
  - BLOOD PRESSURE DECREASED [None]
  - BREATH SOUNDS ABNORMAL [None]
  - DRUG INTERACTION [None]
  - DRUG SCREEN POSITIVE [None]
  - DRUG TOXICITY [None]
  - ELECTROCARDIOGRAM QRS COMPLEX PROLONGED [None]
  - HAEMATEMESIS [None]
  - HAEMODIALYSIS [None]
  - HAEMOGLOBIN DECREASED [None]
  - LACTIC ACIDOSIS [None]
  - OCCULT BLOOD POSITIVE [None]
  - PANCREATITIS [None]
  - RENAL FAILURE ACUTE [None]
  - SINUS TACHYCARDIA [None]
  - SOMNOLENCE [None]
  - VENTRICULAR EXTRASYSTOLES [None]
